FAERS Safety Report 6460931-8 (Version None)
Quarter: 2009Q4

REPORT INFORMATION
  Report Type: 
  Country: None (occurrence: None)
  Receive Date: 20091130
  Receipt Date: 20091123
  Transmission Date: 20100525
  Serious: Yes (Death, Hospitalization, Other)
  Sender: FDA-Public Use
  Company Number: US-ROXANE LABORATORIES, INC.-2009-RO-01187RO

PATIENT
  Age: 45 Year
  Sex: Male

DRUGS (17)
  1. MYCOPHENOLATE MOFETIL [Suspect]
     Indication: IMMUNOSUPPRESSION
     Dates: start: 20070101
  2. PIPERACILLIN AND TAZOBACTAM [Suspect]
     Indication: ANTIBIOTIC PROPHYLAXIS
     Dates: start: 20070701
  3. TACROLIMUS [Suspect]
     Indication: IMMUNOSUPPRESSION
     Dates: start: 20070101
  4. STEROID [Suspect]
     Indication: IMMUNOSUPPRESSION
     Dates: start: 20070101
  5. TRIMETHOPRIM + SULFAMETHOXAZOLE [Suspect]
     Indication: PROPHYLAXIS
     Dates: start: 20070101
  6. TRIMETHOPRIM + SULFAMETHOXAZOLE [Suspect]
  7. LINEZOLID [Suspect]
     Dates: start: 20070101
  8. TIGECYCLINE [Suspect]
     Indication: ANTIBIOTIC THERAPY
  9. TIGECYCLINE [Suspect]
  10. CIPROFLOXACIN [Suspect]
     Indication: ANTIBIOTIC THERAPY
  11. ANIDULAFUNGIN [Suspect]
     Indication: ANTIBIOTIC THERAPY
  12. VORICONAZOLE [Suspect]
     Indication: ANTIBIOTIC THERAPY
  13. GANCICLOVIR [Suspect]
     Indication: ANTIBIOTIC THERAPY
  14. MEROPENEM [Suspect]
     Indication: ANTIBIOTIC THERAPY
  15. DAPTOMYCIN [Suspect]
     Indication: ANTIBIOTIC THERAPY
  16. COLISTIN [Suspect]
     Indication: ANTIBIOTIC THERAPY
  17. AMIKACIN [Suspect]
     Indication: ANTIBIOTIC THERAPY

REACTIONS (22)
  - ASPERGILLOSIS [None]
  - BACTERAEMIA [None]
  - CANDIDIASIS [None]
  - COAGULOPATHY [None]
  - CYTOMEGALOVIRUS HEPATITIS [None]
  - DRUG TOXICITY [None]
  - ENTEROCOCCAL INFECTION [None]
  - GASTROINTESTINAL HAEMORRHAGE [None]
  - HEPATIC ARTERY THROMBOSIS [None]
  - HYPOTENSION [None]
  - KLEBSIELLA INFECTION [None]
  - LIVER ABSCESS [None]
  - LIVER GRAFT LOSS [None]
  - MULTI-ORGAN DISORDER [None]
  - PANCYTOPENIA [None]
  - PERITONITIS [None]
  - PNEUMONIA [None]
  - POST PROCEDURAL BILE LEAK [None]
  - RENAL FAILURE ACUTE [None]
  - SEPSIS [None]
  - SEPTIC SHOCK [None]
  - STENOTROPHOMONAS INFECTION [None]
